FAERS Safety Report 5705247-X (Version None)
Quarter: 2008Q2

REPORT INFORMATION
  Report Type: 
  Country: None (occurrence: None)
  Receive Date: 20080410
  Receipt Date: 20080401
  Transmission Date: 20081010
  Serious: Yes (Hospitalization)
  Sender: FDA-Public Use
  Company Number: GXKR2008GB03187

PATIENT
  Age: 8 Year
  Weight: 37 kg

DRUGS (7)
  1. ENALAPRIL MALEATE [Suspect]
     Indication: HYPERTENSION
     Dosage: 2.5 MG, BID, ORAL; 5 MG, BID, ORAL
     Route: 048
     Dates: start: 20080315, end: 20080316
  2. CYCLOSPORINE [Suspect]
     Indication: NEPHROTIC SYNDROME
     Dosage: 60 MG, BID, ORAL
     Route: 048
     Dates: start: 20020315, end: 20080316
  3. AMLODIPINE [Concomitant]
  4. MYCOPHENOLATE MOFETIL [Concomitant]
  5. OMEPRAZOLE [Concomitant]
  6. PREDNISOLONE [Concomitant]
  7. METHYLPREDNISOLONE [Concomitant]

REACTIONS (2)
  - DRUG INTERACTION [None]
  - RENAL IMPAIRMENT [None]
